FAERS Safety Report 9288104 (Version 1)
Quarter: 2013Q2

REPORT INFORMATION
  Report Type: Report from Study
  Country: US (occurrence: US)
  Receive Date: 20130514
  Receipt Date: 20130514
  Transmission Date: 20140414
  Serious: Yes (Other)
  Sender: FDA-Public Use
  Company Number: US-AMGEN-USANI2013031402

PATIENT
  Age: 93 Year
  Sex: Male

DRUGS (13)
  1. DENOSUMAB [Suspect]
     Indication: PRODUCT USED FOR UNKNOWN INDICATION
  2. XGEVA [Suspect]
     Indication: METASTASES TO BONE
     Dosage: UNK UNK, QMO
  3. CITRICAL                           /00751501/ [Concomitant]
  4. GENISTEIN [Concomitant]
     Indication: OSTEOPOROSIS
  5. LUPRON [Concomitant]
     Dosage: 22.5 MG, Q3MO
  6. CASODEX [Concomitant]
     Dosage: 50 MG, QD
     Route: 048
  7. ALBUTEROL                          /00139501/ [Concomitant]
     Dosage: 90 MUG, QID
     Route: 045
  8. FLOVENT [Concomitant]
     Dosage: 110 MUG, BID
     Route: 045
  9. VITAMIN D /00107901/ [Concomitant]
     Dosage: 200 IU, TID
     Route: 048
  10. FERROUS SULPHATE                   /00023503/ [Concomitant]
     Dosage: 325 MG, QD
     Route: 048
  11. LISINOPRIL [Concomitant]
     Dosage: 40 MG, QD
     Route: 048
  12. TRAMADOL [Concomitant]
     Indication: PAIN
     Dosage: 50 MG, BID
     Route: 048
  13. OMEPRAZOLE [Concomitant]
     Dosage: 40 MG, QD
     Route: 048

REACTIONS (1)
  - Osteonecrosis of jaw [Recovering/Resolving]
